FAERS Safety Report 8005553-2 (Version None)
Quarter: 2011Q4

REPORT INFORMATION
  Report Type: 
  Country: None (occurrence: None)
  Receive Date: 20111223
  Receipt Date: 20111215
  Transmission Date: 20120403
  Serious: Yes (Hospitalization)
  Sender: FDA-Public Use
  Company Number: US-JNJFOC-20111208754

PATIENT
  Age: 32 Year
  Sex: Male

DRUGS (10)
  1. GEODON [Concomitant]
     Route: 048
  2. INVEGA [Concomitant]
     Route: 048
  3. NEURONTIN [Concomitant]
     Route: 048
  4. INVEGA SUSTENNA [Suspect]
     Indication: PRODUCT USED FOR UNKNOWN INDICATION
     Route: 030
  5. LISINOPRIL [Concomitant]
     Route: 048
  6. COGENTIN [Concomitant]
     Route: 048
  7. DEPAKOTE [Concomitant]
     Route: 048
  8. INVEGA [Concomitant]
     Route: 048
     Dates: end: 20111206
  9. INVEGA SUSTENNA [Suspect]
     Route: 030
     Dates: start: 20111201
  10. LORAZEPAM [Concomitant]
     Route: 048

REACTIONS (2)
  - MUSCLE RIGIDITY [None]
  - DROOLING [None]
